FAERS Safety Report 9263840 (Version 1)
Quarter: 2013Q2

REPORT INFORMATION
  Report Type: Spontaneous
  Country: US (occurrence: US)
  Receive Date: 20130430
  Receipt Date: 20130430
  Transmission Date: 20140414
  Serious: Yes (Other)
  Sender: FDA-Public Use
  Company Number: US-NICOBRDEVP-2013-07043

PATIENT
  Age: 49 Year
  Sex: Female

DRUGS (2)
  1. PREDNISONE (WATSON LABORATORIES) [Suspect]
     Indication: POLYCHONDRITIS
     Dosage: UNKNOWN
     Route: 065
  2. METHOTREXATE [Concomitant]
     Indication: POLYCHONDRITIS
     Dosage: UNKNOWN
     Route: 065

REACTIONS (1)
  - Rosacea [Recovering/Resolving]
